FAERS Safety Report 6452974-5 (Version None)
Quarter: 2009Q4

REPORT INFORMATION
  Report Type: 
  Country: None (occurrence: None)
  Receive Date: 20091124
  Receipt Date: 20091119
  Transmission Date: 20100525
  Serious: Yes (Death, Other)
  Sender: FDA-Public Use
  Company Number: PHEH2009US15944

PATIENT
  Sex: Male
  Weight: 70.295 kg

DRUGS (17)
  1. EXJADE [Suspect]
     Indication: MYELODYSPLASTIC SYNDROME
     Dosage: 1000 MG, QD
     Route: 048
     Dates: start: 20090113, end: 20090524
  2. ADVAIR DISKUS 100/50 [Concomitant]
     Dosage: ONE INHALATION BID
  3. ASPIRIN [Concomitant]
     Dosage: 81 MG, QD
  4. AVELOX [Concomitant]
     Dosage: 400 MG, QD
  5. CELEXA [Concomitant]
     Dosage: 20 MG, QD
  6. COMBIVENT                               /GFR/ [Concomitant]
     Dosage: 2 PUFFS AS DIRECTED
  7. DIGOXIN [Concomitant]
     Dosage: 125 MCG QD
  8. GEMFIBROZIL [Concomitant]
     Dosage: 600 MG, BID
  9. KEFLEX [Concomitant]
     Dosage: 500 MG, TID
  10. LASIX [Concomitant]
     Dosage: 20 MG, QD
  11. MULTIVITAMIN ^LAPPE^ [Concomitant]
  12. NEXIUM [Concomitant]
     Dosage: 40 MG, QD
  13. PREDNISONE [Concomitant]
     Dosage: 20 MG, QD
  14. REVLIMID [Concomitant]
     Dosage: 5 MG, QD
  15. TIMOLOL [Concomitant]
     Dosage: 1 DROP QD
  16. TYLENOL (CAPLET) [Concomitant]
     Dosage: 1000 MG, PRN
  17. TRANSFUSIONS [Suspect]

REACTIONS (10)
  - BLOOD CALCIUM DECREASED [None]
  - BLOOD CHLORIDE INCREASED [None]
  - BLOOD CREATININE INCREASED [None]
  - BLOOD MAGNESIUM DECREASED [None]
  - BLOOD POTASSIUM INCREASED [None]
  - BLOOD UREA INCREASED [None]
  - CARBON DIOXIDE DECREASED [None]
  - GLOMERULAR FILTRATION RATE DECREASED [None]
  - LEUKAEMIA [None]
  - MALIGNANT NEOPLASM PROGRESSION [None]
